FAERS Safety Report 25248013 (Version 2)
Quarter: 2025Q2

REPORT INFORMATION
  Report Type: Spontaneous
  Country: IT (occurrence: IT)
  Receive Date: 20250429
  Receipt Date: 20250528
  Transmission Date: 20250716
  Serious: Yes (Hospitalization)
  Sender: RANBAXY
  Company Number: IT-MINISAL02-1025091

PATIENT
  Age: 66 Year
  Sex: Male

DRUGS (2)
  1. CIPROFLOXACIN [Suspect]
     Active Substance: CIPROFLOXACIN
     Indication: Surgery
     Route: 065
     Dates: start: 20241009
  2. METRONIDAZOLE [Suspect]
     Active Substance: METRONIDAZOLE
     Indication: Product used for unknown indication
     Route: 065
     Dates: start: 20241009

REACTIONS (1)
  - Blood creatine increased [Unknown]

NARRATIVE: CASE EVENT DATE: 20241028
